FAERS Safety Report 26020637 (Version 1)
Quarter: 2025Q4

REPORT INFORMATION
  Report Type: Spontaneous
  Country: US (occurrence: None)
  Receive Date: 20251109
  Receipt Date: 20251109
  Transmission Date: 20260118
  Serious: Yes (Disabling, Other)
  Sender: FDA-CTU
  Company Number: None

PATIENT
  Age: 35 Year
  Sex: Female

DRUGS (27)
  1. OFLOXACIN OTIC [Suspect]
     Active Substance: OFLOXACIN
     Indication: Ear infection
     Dosage: 5 DROP(S) EVERY 12 HOURS OPHTHAMIC
     Route: 047
     Dates: start: 20250804, end: 20250806
  2. CIPROFLOXACIN [Suspect]
     Active Substance: CIPROFLOXACIN
  3. CIPROFLOXACIN [Suspect]
     Active Substance: CIPROFLOXACIN
  4. LEVOFLOXACIN [Suspect]
     Active Substance: LEVOFLOXACIN
  5. KETAMINE SUPPOSITORIES [Concomitant]
  6. LIPOSOMAL GLUTATHIONE [Concomitant]
  7. LIPOSOMAL ERGOTHIONEINE [Concomitant]
  8. LIPOSOMAL PQQ [Concomitant]
  9. UBIQUINOL [Concomitant]
     Active Substance: UBIQUINOL
  10. DIETARY SUPPLEMENT\GRAPE SEED EXTRACT [Concomitant]
     Active Substance: DIETARY SUPPLEMENT\GRAPE SEED EXTRACT
  11. VIT B2 [Concomitant]
  12. VITAMIN C [Concomitant]
     Active Substance: ASCORBIC ACID
  13. VITAMIN B3 [Concomitant]
     Active Substance: NIACIN
  14. CHONDROITIN [Concomitant]
     Active Substance: CHONDROITIN
  15. HERBALS\WITHANIA SOMNIFERA ROOT [Concomitant]
     Active Substance: HERBALS\WITHANIA SOMNIFERA ROOT
  16. LIPOMOMAL CURCUMIN [Concomitant]
  17. OMEGA 3 [Concomitant]
     Active Substance: CAPSAICIN
  18. GLUCOSAMINE [Concomitant]
     Active Substance: GLUCOSAMINE
  19. LYSINE [Concomitant]
     Active Substance: LYSINE
  20. PROLINE [Concomitant]
     Active Substance: PROLINE
  21. LIPOSOMAL THEANINE [Concomitant]
  22. VITAMIN D3 [Concomitant]
     Active Substance: CHOLECALCIFEROL
  23. LIPOSOMAL K2-4 [Concomitant]
  24. LIPOSOMAL K2-7 [Concomitant]
  25. CHELATED MAGNESIUM BISGLYCINATE [Concomitant]
  26. RPLUS-ALA [Concomitant]
  27. ACETYL CARNITIN [Concomitant]

REACTIONS (20)
  - Fatigue [None]
  - Insomnia [None]
  - Cognitive disorder [None]
  - Product communication issue [None]
  - Muscle disorder [None]
  - Pain in extremity [None]
  - Arthralgia [None]
  - Occipital neuralgia [None]
  - Trigeminal neuralgia [None]
  - Muscle strain [None]
  - Tendon disorder [None]
  - Axillary pain [None]
  - Muscle atrophy [None]
  - Paraesthesia [None]
  - Gait disturbance [None]
  - Allodynia [None]
  - Loss of proprioception [None]
  - Hypoaesthesia [None]
  - Hypoaesthesia [None]
  - Hypoaesthesia [None]

NARRATIVE: CASE EVENT DATE: 20250806
